FAERS Safety Report 18504158 (Version 1)
Quarter: 2020Q4

REPORT INFORMATION
  Report Type: Spontaneous
  Country: JP (occurrence: JP)
  Receive Date: 20201113
  Receipt Date: 20201113
  Transmission Date: 20210114
  Serious: Yes (Death, Other)
  Sender: FDA-Public Use
  Company Number: JP-BRISTOL-MYERS SQUIBB COMPANY-BMS-2020-095333

PATIENT
  Age: 79 Year
  Sex: Male

DRUGS (1)
  1. OPDIVO [Suspect]
     Active Substance: NIVOLUMAB
     Indication: OESOPHAGEAL CARCINOMA
     Dosage: UNK
     Route: 041
     Dates: start: 202003, end: 202009

REACTIONS (8)
  - Cardio-respiratory arrest [Fatal]
  - Anaemia [Unknown]
  - Gastric ulcer [Unknown]
  - Gastric antral vascular ectasia [Unknown]
  - Haematemesis [Fatal]
  - Upper gastrointestinal haemorrhage [Unknown]
  - Malaise [Unknown]
  - Decreased appetite [Unknown]

NARRATIVE: CASE EVENT DATE: 202004
